FAERS Safety Report 7163752-6 (Version None)
Quarter: 2010Q4

REPORT INFORMATION
  Report Type: 
  Country: None (occurrence: None)
  Receive Date: 20101215
  Receipt Date: 20100608
  Transmission Date: 20110411
  Serious: Yes (Other)
  Sender: FDA-Public Use
  Company Number: US-PFIZER INC-2010072073

PATIENT
  Age: 37 Year
  Sex: Female

DRUGS (4)
  1. LYRICA [Suspect]
     Dosage: 150 MG, 2X/DAY
     Route: 048
     Dates: start: 20080101
  2. KEPPRA [Suspect]
     Dosage: 750 MG, 2X/DAY
     Route: 048
  3. TEGRETOL [Suspect]
     Indication: EPILEPSY
     Dosage: UNK
  4. ATIVAN [Concomitant]
     Indication: SLEEP DISORDER
     Dosage: 2 MG, 1X/DAY
     Route: 048

REACTIONS (8)
  - BLINDNESS UNILATERAL [None]
  - CONVULSION [None]
  - DIZZINESS [None]
  - EAR DISORDER [None]
  - FURUNCLE [None]
  - VIRAL INFECTION [None]
  - VISION BLURRED [None]
  - WEIGHT INCREASED [None]
